FAERS Safety Report 4681066-0 (Version None)
Quarter: 2005Q2

REPORT INFORMATION
  Report Type: 
  Country: None (occurrence: None)
  Receive Date: 20050603
  Receipt Date: 20050511
  Transmission Date: 20051028
  Serious: Yes (Life-Threatening, Hospitalization)
  Sender: FDA-Public Use
  Company Number: US-GLAXOSMITHKLINE-A0558861A

PATIENT
  Age: 51 Year
  Sex: Male

DRUGS (4)
  1. WELLBUTRIN XL [Suspect]
     Indication: MAJOR DEPRESSION
     Dosage: 450MG PER DAY
     Route: 048
  2. LAMICTAL [Concomitant]
     Dosage: 125MG PER DAY
     Route: 048
     Dates: start: 20040501, end: 20050301
  3. TOPAMAX [Concomitant]
     Dosage: 100MG PER DAY
     Route: 048
     Dates: start: 20030201, end: 20040501
  4. CLONAZEPAM [Concomitant]
     Indication: ANXIETY
     Dosage: .5MG TWICE PER DAY
     Dates: start: 20041201, end: 20050201

REACTIONS (2)
  - SUICIDAL IDEATION [None]
  - SUICIDE ATTEMPT [None]
